FAERS Safety Report 5236678-2 (Version None)
Quarter: 2007Q1

REPORT INFORMATION
  Report Type: 
  Country: None (occurrence: None)
  Receive Date: 20070208
  Receipt Date: 20070131
  Transmission Date: 20070707
  Serious: Yes (Other)
  Sender: FDA-Public Use
  Company Number: CHPA2007US01919

PATIENT
  Age: 54 Year
  Sex: Male
  Weight: 81.6 kg

DRUGS (9)
  1. NICOTINE [Suspect]
     Indication: SMOKING CESSATION THERAPY
     Dosage: 21 MG, QD, TRANSDERMAL
     Route: 062
     Dates: start: 20070126, end: 20070131
  2. PRIVATE LABEL STRENGTH UNKNOWN (NCH)(NICOTINE) TRANS-THERAPEUTIC-SYSTE [Suspect]
     Indication: SMOKING CESSATION THERAPY
     Dosage: 14 MF, QD, TRANSDERMAL
     Route: 062
     Dates: start: 20070122
  3. GLUCOPHAGE [Concomitant]
  4. AVANDIA [Concomitant]
  5. ZESTORETIC STUARTA COMPANY (HYDROCHLOROTHIAZIDE, LISINOPRIL) [Concomitant]
  6. TENORMIN [Concomitant]
  7. ZANTAC [Concomitant]
  8. VALIUM [Concomitant]
  9. CEFPODOXIME (CEFPODOXIME) [Concomitant]

REACTIONS (6)
  - CHEST DISCOMFORT [None]
  - CONFUSIONAL STATE [None]
  - DYSPNOEA [None]
  - HEADACHE [None]
  - NERVOUSNESS [None]
  - VISION BLURRED [None]
